FAERS Safety Report 7949125-4 (Version None)
Quarter: 2011Q4

REPORT INFORMATION
  Report Type: 
  Country: None (occurrence: None)
  Receive Date: 20111123
  Receipt Date: 20111101
  Transmission Date: 20120403
  Serious: Yes (Life-Threatening)
  Sender: FDA-Public Use
  Company Number: 54973

PATIENT
  Age: 14 Month
  Sex: Male

DRUGS (3)
  1. HYLAND'S BABY TEETHING TABLETS [Suspect]
     Indication: TEETHING
     Dosage: 2TABLETS X 6HRS X 3DAYS
  2. ACETAMINOPHEN [Concomitant]
  3. IBUPROFEN [Concomitant]

REACTIONS (3)
  - LETHARGY [None]
  - MOUTH ULCERATION [None]
  - PETIT MAL EPILEPSY [None]
